FAERS Safety Report 16724332 (Version 1)
Quarter: 2019Q3

REPORT INFORMATION
  Report Type: Spontaneous
  Country: FR (occurrence: FR)
  Receive Date: 20190821
  Receipt Date: 20190821
  Transmission Date: 20191005
  Serious: Yes (Other)
  Sender: FDA-Public Use
  Company Number: FR-MYLANLABS-2019M1074606

PATIENT
  Age: 27 Year
  Sex: Female
  Weight: 75 kg

DRUGS (1)
  1. BUPIVACAINE MYLAN [Suspect]
     Active Substance: BUPIVACAINE
     Indication: ANAESTHESIA
     Dosage: 10 MILLIGRAM
     Route: 037
     Dates: start: 20190131, end: 20190131

REACTIONS (1)
  - Product measured potency issue [Recovered/Resolved]

NARRATIVE: CASE EVENT DATE: 20190131
